FAERS Safety Report 21820335 (Version 1)
Quarter: 2023Q1

REPORT INFORMATION
  Report Type: Spontaneous
  Country: FR (occurrence: FR)
  Receive Date: 20230105
  Receipt Date: 20230105
  Transmission Date: 20230417
  Serious: Yes (Hospitalization)
  Sender: FDA-Public Use
  Company Number: FR-AFSSAPS-PO20222072

PATIENT
  Age: 81 Year
  Sex: Male

DRUGS (2)
  1. CIPROFLOXACIN [Suspect]
     Active Substance: CIPROFLOXACIN
     Indication: Otitis externa
     Dosage: 500 MILLIGRAM, FOUR TIMES/DAY
     Route: 048
     Dates: start: 20221114, end: 20221123
  2. OFLOXACIN [Suspect]
     Active Substance: OFLOXACIN
     Indication: Otitis externa
     Dosage: UNK UNK, TWO TIMES A DAY (1.5 MG/0.5 ML)
     Route: 001
     Dates: start: 20221114, end: 20221123

REACTIONS (1)
  - Fixed eruption [Not Recovered/Not Resolved]

NARRATIVE: CASE EVENT DATE: 20221123
